FAERS Safety Report 21292437 (Version 1)
Quarter: 2022Q3

REPORT INFORMATION
  Report Type: Spontaneous
  Country: JP (occurrence: JP)
  Receive Date: 20220905
  Receipt Date: 20220905
  Transmission Date: 20221026
  Serious: Yes (Death, Hospitalization, Other)
  Sender: FDA-Public Use
  Company Number: JP-MSNLABS-2022MSNLIT01002

PATIENT

DRUGS (2)
  1. PACLITAXEL [Suspect]
     Active Substance: PACLITAXEL
     Indication: Ovarian cancer metastatic
     Route: 065
  2. CARBOPLATIN [Suspect]
     Active Substance: CARBOPLATIN
     Indication: Ovarian cancer metastatic
     Route: 065

REACTIONS (3)
  - Tumour lysis syndrome [Fatal]
  - Ileus [Fatal]
  - Intestinal perforation [Fatal]
